FAERS Safety Report 17488011 (Version 3)
Quarter: 2020Q1

REPORT INFORMATION
  Report Type: Report from Study
  Country: CO (occurrence: CO)
  Receive Date: 20200303
  Receipt Date: 20200331
  Transmission Date: 20200409
  Serious: Yes (Hospitalization)
  Sender: FDA-Public Use
  Company Number: NVSC2020CO058786

PATIENT
  Sex: Female
  Weight: 42 kg

DRUGS (1)
  1. GLIVEC [Suspect]
     Active Substance: IMATINIB MESYLATE
     Indication: CHRONIC MYELOID LEUKAEMIA
     Dosage: UNK
     Route: 048
     Dates: start: 20190918, end: 20200117

REACTIONS (5)
  - General physical health deterioration [Unknown]
  - Pulmonary oedema [Unknown]
  - Pigmentation disorder [Recovering/Resolving]
  - Skin exfoliation [Recovered/Resolved]
  - Blood pressure increased [Recovered/Resolved]
